FAERS Safety Report 7850437-3 (Version None)
Quarter: 2011Q4

REPORT INFORMATION
  Report Type: 
  Country: None (occurrence: None)
  Receive Date: 20111026
  Receipt Date: 20111026
  Transmission Date: 20120403
  Serious: Yes (Other)
  Sender: FDA-Public Use
  Company Number: None

PATIENT
  Sex: Female

DRUGS (1)
  1. ALCOHOL SWABS [Suspect]
     Indication: SKIN IRRITATION
     Dosage: 10 SWABS USED
     Dates: start: 20111019, end: 20111019

REACTIONS (5)
  - ERYTHEMA [None]
  - SKIN REACTION [None]
  - ASTHMA [None]
  - HEADACHE [None]
  - SKIN SWELLING [None]
